FAERS Safety Report 8407377-0 (Version None)
Quarter: 2012Q2

REPORT INFORMATION
  Report Type: 
  Country: None (occurrence: None)
  Receive Date: 20120323
  Receipt Date: 20110714
  Transmission Date: 20120825
  Serious: Yes (Life-Threatening, Other)
  Sender: FDA-Public Use
  Company Number: 163-21880-11021150

PATIENT
  Age: 79 Year
  Sex: Male

DRUGS (6)
  1. ZOMETA [Concomitant]
  2. REVLIMID [Suspect]
     Indication: MULTIPLE MYELOMA
     Dosage: 15 MG; 25 MH;12.5 MG, 1 IN 1 D;1 IN 2 D, PO
     Route: 048
     Dates: start: 20090701
  3. REVLIMID [Suspect]
     Indication: MULTIPLE MYELOMA
     Dosage: 15 MG; 25 MH;12.5 MG, 1 IN 1 D;1 IN 2 D, PO
     Route: 048
     Dates: start: 20101101
  4. REVLIMID [Suspect]
     Indication: MULTIPLE MYELOMA
     Dosage: 15 MG; 25 MH;12.5 MG, 1 IN 1 D;1 IN 2 D, PO
     Route: 048
     Dates: start: 20100901
  5. REVLIMID [Suspect]
  6. ARANESP [Concomitant]

REACTIONS (3)
  - SEPTIC SHOCK [None]
  - PNEUMONIA HAEMOPHILUS [None]
  - PLATELET COUNT DECREASED [None]
